FAERS Safety Report 24943017 (Version 1)
Quarter: 2025Q1

REPORT INFORMATION
  Report Type: Spontaneous
  Country: CN (occurrence: CN)
  Receive Date: 20250207
  Receipt Date: 20250207
  Transmission Date: 20250408
  Serious: Yes (Other)
  Sender: JIANGSU HANSOH PHARMACEUTICAL
  Company Number: CN-Jiangsu Hansoh Pharmaceutical Co., Ltd-2170696

PATIENT
  Age: 53 Year
  Sex: Female
  Weight: 57 kg

DRUGS (2)
  1. GEMCITABINE HYDROCHLORIDE [Suspect]
     Active Substance: GEMCITABINE HYDROCHLORIDE
     Indication: Cervix carcinoma recurrent
     Dates: start: 20250104, end: 20250111
  2. CATEQUENTINIB HYDROCHLORIDE [Suspect]
     Active Substance: CATEQUENTINIB HYDROCHLORIDE
     Dates: start: 20250104, end: 20250116

REACTIONS (9)
  - Myelosuppression [Recovering/Resolving]
  - Off label use [Unknown]
  - Faeces hard [Recovering/Resolving]
  - Poor quality sleep [Recovering/Resolving]
  - Decreased appetite [Recovering/Resolving]
  - Listless [Recovering/Resolving]
  - Epistaxis [Recovering/Resolving]
  - Pneumonia [Recovering/Resolving]
  - Pyrexia [Recovered/Resolved]

NARRATIVE: CASE EVENT DATE: 20250104
